APPROVED DRUG PRODUCT: CHLORAMPHENICOL SODIUM SUCCINATE
Active Ingredient: CHLORAMPHENICOL SODIUM SUCCINATE
Strength: EQ 1GM BASE/VIAL
Dosage Form/Route: INJECTABLE;INJECTION
Application: A062278 | Product #001
Applicant: GRUPPO LEPETIT SPA SUB MERRELL DOW PHARMACEUTICALS INC
Approved: Approved Prior to Jan 1, 1982 | RLD: No | RS: No | Type: DISCN